FAERS Safety Report 9348124 (Version 2)
Quarter: 2013Q3

REPORT INFORMATION
  Report Type: Spontaneous
  Country: DE (occurrence: DE)
  Receive Date: 20130614
  Receipt Date: 20130701
  Transmission Date: 20140515
  Serious: Yes (Other)
  Sender: FDA-Public Use
  Company Number: DE-JNJFOC-20130601313

PATIENT
  Age: 34 Year
  Sex: Female

DRUGS (3)
  1. XEPLION [Suspect]
     Indication: SCHIZOPHRENIA
     Dosage: 3 MONTHS AGO
     Route: 030
     Dates: start: 2013
  2. XEPLION [Suspect]
     Indication: SCHIZOPHRENIA
     Route: 030
     Dates: start: 2013
  3. AMISULPRID [Interacting]
     Indication: SCHIZOPHRENIA
     Route: 065

REACTIONS (2)
  - Dyspnoea [Unknown]
  - Drug interaction [Unknown]
